FAERS Safety Report 26208291 (Version 1)
Quarter: 2025Q4

REPORT INFORMATION
  Report Type: Spontaneous
  Country: EU (occurrence: EU)
  Receive Date: 20251229
  Receipt Date: 20251229
  Transmission Date: 20260118
  Serious: Yes (Hospitalization, Disabling, Other)
  Sender: B. BRAUN MEDICAL INC.
  Company Number: None

PATIENT
  Age: 85 Year
  Sex: Female
  Weight: 52 kg

DRUGS (4)
  1. LIDOCAINE [Suspect]
     Active Substance: LIDOCAINE
     Indication: Local anaesthesia
     Dosage: EENMALIGE TOEDINGEN VOORAFGAAND AAN OK?EN: ONE-TIME ADMINSITRATION PRIOR TO SURGERY
  2. APIXABAN TABLET 5MG / Brand name not specified [Concomitant]
     Dosage: TABLET, 5 MG (MILLIGRAM)
  3. DIGOXINE TABLET 0,0625MG / LANOXIN PG TABLET 0,0625MG [Concomitant]
     Dosage: TABLET, 0,0625 MG (MILLIGRAM)
  4. BISOPROLOL TABLET   5MG / Brand name not specified [Concomitant]
     Dosage: TABLET, 5 MG (MILLIGRAM)

REACTIONS (2)
  - Necrosis ischaemic [Unknown]
  - Onycholysis [Unknown]
